FAERS Safety Report 10044730 (Version 2)
Quarter: 2014Q2

REPORT INFORMATION
  Report Type: Spontaneous
  Country: US (occurrence: US)
  Receive Date: 20140328
  Receipt Date: 20140613
  Transmission Date: 20141212
  Serious: Yes (Hospitalization)
  Sender: FDA-Public Use
  Company Number: US-SA-2014SA035358

PATIENT
  Age: 12 Year
  Sex: Female
  Weight: 42.4 kg

DRUGS (2)
  1. APIDRA [Suspect]
     Indication: PRODUCT USED FOR UNKNOWN INDICATION
     Route: 065
     Dates: end: 20140201
  2. INSULIN [Concomitant]
     Route: 041
     Dates: start: 2014, end: 2014

REACTIONS (2)
  - Diabetic ketoacidosis [Recovered/Resolved]
  - Wrong technique in drug usage process [Unknown]
